FAERS Safety Report 5464514-8 (Version None)
Quarter: 2007Q3

REPORT INFORMATION
  Report Type: 
  Country: None (occurrence: None)
  Receive Date: 20070921
  Receipt Date: 20070914
  Transmission Date: 20080115
  Serious: Yes (Life-Threatening, Hospitalization)
  Sender: FDA-Public Use
  Company Number: ES-ROXANE LABORATORIES, INC-2007-DE-05119GD

PATIENT
  Age: 30 Year
  Sex: Female

DRUGS (7)
  1. METAMIZOLE [Suspect]
     Indication: ABDOMINAL PAIN
  2. PARACETAMOL [Suspect]
     Indication: ABDOMINAL PAIN
  3. DIAZEPAM [Suspect]
     Indication: GRAND MAL CONVULSION
  4. HYOSCINE N BUTYLBROMIDE [Suspect]
     Indication: ABDOMINAL PAIN
  5. DICLOFENAC [Suspect]
     Indication: ABDOMINAL PAIN
  6. METOCLOPRAMIDE [Suspect]
     Indication: NAUSEA
  7. METOCLOPRAMIDE [Suspect]
     Indication: VOMITING

REACTIONS (8)
  - COMA [None]
  - DRUG INEFFECTIVE [None]
  - GRAND MAL CONVULSION [None]
  - HYPERTENSION [None]
  - HYPONATRAEMIA [None]
  - INAPPROPRIATE ANTIDIURETIC HORMONE SECRETION [None]
  - PORPHYRIA [None]
  - RHABDOMYOLYSIS [None]
